FAERS Safety Report 10206011 (Version 1)
Quarter: 2014Q2

REPORT INFORMATION
  Report Type: Spontaneous
  Country: US (occurrence: US)
  Receive Date: 20140530
  Receipt Date: 20140530
  Transmission Date: 20141212
  Serious: Yes (Other)
  Sender: FDA-Public Use
  Company Number: US-009507513-1405USA011660

PATIENT
  Age: 38 Year
  Sex: Female
  Weight: 67.12 kg

DRUGS (3)
  1. IMPLANON [Suspect]
  2. HUMIRA [Suspect]
     Indication: RHEUMATOID ARTHRITIS
     Dosage: 40 MG, (FREQUENCY: 1 IN 2 WEEKS)
     Dates: start: 20140120, end: 2014
  3. HUMIRA [Suspect]
     Dosage: 40 MG, UNK
     Dates: start: 20140212

REACTIONS (6)
  - Axillary mass [Unknown]
  - Visual impairment [Unknown]
  - Menstrual disorder [Unknown]
  - Back pain [Unknown]
  - Injection site pain [Unknown]
  - Breast lump removal [Unknown]
